FAERS Safety Report 14349508 (Version 1)
Quarter: 2018Q1

REPORT INFORMATION
  Report Type: Spontaneous
  Country: US (occurrence: US)
  Receive Date: 20180104
  Receipt Date: 20180104
  Transmission Date: 20180509
  Serious: No
  Sender: FDA-Public Use
  Company Number: US-009507513-1712USA005832

PATIENT
  Sex: Male

DRUGS (1)
  1. DULERA [Suspect]
     Active Substance: FORMOTEROL FUMARATE DIHYDRATE\MOMETASONE FUROATE
     Dosage: 1 OR 2 PUFFS TWICE DAILY (ROUTE OF ADMINISTRATION: ORAL INHALATION)
     Route: 055

REACTIONS (4)
  - Drug dose omission [Unknown]
  - Product container issue [Unknown]
  - Product use issue [Unknown]
  - No adverse event [Unknown]
